FAERS Safety Report 7353882-8 (Version None)
Quarter: 2011Q1

REPORT INFORMATION
  Report Type: 
  Country: None (occurrence: None)
  Receive Date: 20110315
  Receipt Date: 20110211
  Transmission Date: 20110831
  Serious: No
  Sender: FDA-Public Use
  Company Number: US-BAYER-2011-014949

PATIENT
  Sex: Female
  Weight: 67 kg

DRUGS (3)
  1. ALEVE [Suspect]
     Indication: PRODUCT USED FOR UNKNOWN INDICATION
     Dosage: DAILY WITH FOOD, ONCE
     Route: 048
  2. SIMVASTATIN [Concomitant]
  3. SOTALOL HYDROCHLORIDE [Concomitant]

REACTIONS (2)
  - HERNIA PAIN [None]
  - HIATUS HERNIA [None]
